FAERS Safety Report 4707191-3 (Version None)
Quarter: 2005Q3

REPORT INFORMATION
  Report Type: 
  Country: None (occurrence: None)
  Receive Date: 20050701
  Receipt Date: 20050615
  Transmission Date: 20060218
  Serious: Yes (Hospitalization)
  Sender: FDA-Public Use
  Company Number: B0381167A

PATIENT
  Age: 3 Year
  Sex: Male

DRUGS (1)
  1. ALBENZA [Suspect]
     Dosage: 2 TABLET/SINGLE DOSE
     Route: 048

REACTIONS (6)
  - ABDOMINAL PAIN [None]
  - CRYING [None]
  - RESTLESSNESS [None]
  - SCRATCH [None]
  - STRIDOR [None]
  - URTICARIA GENERALISED [None]
